FAERS Safety Report 26204030 (Version 1)
Quarter: 2025Q4

REPORT INFORMATION
  Report Type: Spontaneous
  Country: TW (occurrence: TW)
  Receive Date: 20251226
  Receipt Date: 20251226
  Transmission Date: 20260117
  Serious: Yes (Hospitalization, Other)
  Sender: TEVA
  Company Number: TW-TEVA-VS-3405231

PATIENT
  Age: 23 Year
  Sex: Female

DRUGS (1)
  1. AJOVY [Suspect]
     Active Substance: FREMANEZUMAB-VFRM
     Indication: Product used for unknown indication
     Dosage: THREE 225 MG INJECTIONS ADMINISTERED AT ONE TIME
     Route: 058
     Dates: start: 20251126

REACTIONS (5)
  - Suicidal behaviour [Unknown]
  - Fatigue [Unknown]
  - Feeling abnormal [Unknown]
  - Overdose [Unknown]
  - Somnolence [Unknown]

NARRATIVE: CASE EVENT DATE: 20251126
